FAERS Safety Report 4909916-0 (Version None)
Quarter: 2006Q1

REPORT INFORMATION
  Report Type: 
  Country: None (occurrence: None)
  Receive Date: 20060209
  Receipt Date: 20060131
  Transmission Date: 20060701
  Serious: Yes (Hospitalization)
  Sender: FDA-Public Use
  Company Number: 221635

PATIENT
  Age: 57 Year
  Sex: Male
  Weight: 88 kg

DRUGS (5)
  1. AVASTIN (BEVACIZUMAB) PWDR + SOLVENT, INFUSION SOLN, 100MG [Suspect]
     Indication: ADENOCARCINOMA PANCREAS
     Dosage: 10 MG/KG, DAYS 1+15,
     Dates: start: 20060109
  2. OXALIPLATIN (OXALIPLATIN) [Suspect]
     Indication: ADENOCARCINOMA PANCREAS
     Dosage: 100 MG/M2,
     Dates: start: 20060109
  3. GEMCITABINE (GEMCITABINE HYDROCHLORIDE) [Suspect]
     Indication: ADENOCARCINOMA PANCREAS
     Dosage: 1000 MG/M2, DAYS 1+15,
     Dates: start: 20060109
  4. DIOVAN [Concomitant]
  5. HCTZ (HYDROCHLOROTHIAZIDE) [Concomitant]

REACTIONS (5)
  - DEHYDRATION [None]
  - DIARRHOEA [None]
  - HYPOTENSION [None]
  - NAUSEA [None]
  - SYNCOPE [None]
